FAERS Safety Report 16740185 (Version 7)
Quarter: 2021Q1

REPORT INFORMATION
  Report Type: Spontaneous
  Country: JP (occurrence: JP)
  Receive Date: 20190826
  Receipt Date: 20210112
  Transmission Date: 20210419
  Serious: Yes (Death, Disabling)
  Sender: FDA-Public Use
  Company Number: JP-KYOWAKIRIN-2019AKK013301

PATIENT

DRUGS (6)
  1. POTELIGEO [Suspect]
     Active Substance: MOGAMULIZUMAB-KPKC
     Indication: ADULT T-CELL LYMPHOMA/LEUKAEMIA
     Dosage: 45 MG
     Route: 041
     Dates: start: 20190530, end: 20190718
  2. REVLIMID [Concomitant]
     Active Substance: LENALIDOMIDE
     Dosage: UNK
     Route: 048
     Dates: start: 20190425, end: 20190523
  3. FLUDARABINE PHOSPHATE. [Concomitant]
     Active Substance: FLUDARABINE PHOSPHATE
     Indication: ALLOGENIC STEM CELL TRANSPLANTATION
     Dosage: 90 MG/M2
     Route: 065
     Dates: start: 201902
  4. POTELIGEO [Suspect]
     Active Substance: MOGAMULIZUMAB-KPKC
     Dosage: 45 MG
     Route: 041
     Dates: start: 20181218, end: 20190121
  5. REVLIMID [Concomitant]
     Active Substance: LENALIDOMIDE
     Indication: ADULT T-CELL LYMPHOMA/LEUKAEMIA
     Dosage: UNK
     Route: 048
     Dates: start: 20180306
  6. MELPHALAN. [Concomitant]
     Active Substance: MELPHALAN
     Indication: ALLOGENIC STEM CELL TRANSPLANTATION
     Dosage: 80 MG/M2
     Route: 042
     Dates: start: 201902

REACTIONS (2)
  - Giant cell myocarditis [Fatal]
  - Engraft failure [Not Recovered/Not Resolved]

NARRATIVE: CASE EVENT DATE: 20190208
